FAERS Safety Report 8230300-9 (Version None)
Quarter: 2012Q1

REPORT INFORMATION
  Report Type: 
  Country: None (occurrence: None)
  Receive Date: 20120323
  Receipt Date: 20120313
  Transmission Date: 20120608
  Serious: No
  Sender: FDA-Public Use
  Company Number: US-JNJFOC-20120209525

PATIENT
  Sex: Female
  Weight: 60.78 kg

DRUGS (4)
  1. DURAGESIC-100 [Suspect]
     Indication: PRODUCT USED FOR UNKNOWN INDICATION
     Route: 062
     Dates: start: 20120101
  2. HYDROCODONE BITARTRATE [Concomitant]
     Indication: PAIN
     Dosage: 10-325 MG TABLET/4 DAILY
     Route: 048
  3. PERCOCET [Concomitant]
     Indication: PAIN
     Route: 048
  4. DURAGESIC-100 [Suspect]
     Route: 062
     Dates: start: 20111201

REACTIONS (4)
  - DRUG DOSE OMISSION [None]
  - WRONG TECHNIQUE IN DRUG USAGE PROCESS [None]
  - DRUG INEFFECTIVE [None]
  - PRODUCT QUALITY ISSUE [None]
